FAERS Safety Report 5877948-4 (Version None)
Quarter: 2008Q3

REPORT INFORMATION
  Report Type: 
  Country: None (occurrence: None)
  Receive Date: 20080911
  Receipt Date: 20080908
  Transmission Date: 20090109
  Serious: Yes (Hospitalization)
  Sender: FDA-Public Use
  Company Number: B0536008A

PATIENT
  Age: 42 Year
  Sex: Male

DRUGS (7)
  1. EPZICOM [Suspect]
     Indication: ACQUIRED IMMUNODEFICIENCY SYNDROME
     Route: 048
     Dates: start: 20060808
  2. STOCRIN [Suspect]
     Indication: ACQUIRED IMMUNODEFICIENCY SYNDROME
     Route: 048
     Dates: start: 20060808
  3. REYATAZ [Concomitant]
     Indication: ACQUIRED IMMUNODEFICIENCY SYNDROME
     Route: 048
     Dates: start: 20070814
  4. ALLELOCK [Concomitant]
     Indication: FOLLICULITIS
     Dosage: 5MG TWICE PER DAY
     Route: 048
     Dates: start: 20070403
  5. CLARITHROMYCIN [Concomitant]
     Indication: FOLLICULITIS
     Dosage: 200MG TWICE PER DAY
     Route: 048
     Dates: start: 20070403
  6. ZYLORIC [Concomitant]
     Indication: HYPERURICAEMIA
     Route: 048
     Dates: start: 20070521
  7. AMOBAN [Concomitant]
     Indication: INSOMNIA
     Dosage: 7.5MG PER DAY
     Route: 048
     Dates: start: 20070521

REACTIONS (3)
  - ABASIA [None]
  - CONVERSION DISORDER [None]
  - GAIT DISTURBANCE [None]
